FAERS Safety Report 21357536 (Version 3)
Quarter: 2022Q4

REPORT INFORMATION
  Report Type: Spontaneous
  Country: DE (occurrence: DE)
  Receive Date: 20220921
  Receipt Date: 20221029
  Transmission Date: 20230112
  Serious: Yes (Hospitalization)
  Sender: FDA-Public Use
  Company Number: DE-NOVARTISPH-NVSC2022DE210032

PATIENT
  Age: 63 Year
  Sex: Female

DRUGS (8)
  1. CARBOPLATIN [Suspect]
     Active Substance: CARBOPLATIN
     Indication: Neoplasm
     Dosage: 503 MG, Q3W (ON 29 AUG 2022, LAST DOSE (503 MG) OF CANCER TREATMENT WAS ADMINISTERED PRIOR TO AE/SAE
     Route: 042
     Dates: start: 20220829
  2. CARBOPLATIN [Suspect]
     Active Substance: CARBOPLATIN
     Dosage: 503 MG, Q3W
     Route: 042
     Dates: start: 20221010
  3. PACLITAXEL [Suspect]
     Active Substance: PACLITAXEL
     Indication: Neoplasm
     Dosage: 175 MG/M2, Q3W (ON 29 AUG 2022, LAST DOSE OF CANCER TREATMENT WAS ADMINISTERED PRIOR TO AE/SAE)
     Route: 042
     Dates: start: 20220829
  4. PACLITAXEL [Suspect]
     Active Substance: PACLITAXEL
     Dosage: 312 MG (MOST RECENT DOSE PRIOR TO AE/SAE)
     Route: 042
     Dates: start: 20221010
  5. BEVACIZUMAB [Suspect]
     Active Substance: BEVACIZUMAB
     Indication: Neoplasm
     Dosage: 15 MG/KG, Q3W (ON 29 AUG 2022, LAST DOSE (15 MG/KG) OF CANCER TREATMENT WAS ADMINISTERED PRIOR TO AE
     Route: 042
     Dates: start: 20220829
  6. BEVACIZUMAB [Suspect]
     Active Substance: BEVACIZUMAB
     Dosage: 1125 MG (MOST RECENT DOSE PRIOR TO AE/SAE)
     Route: 042
     Dates: start: 20221010
  7. PANTOPRAZOLE [Concomitant]
     Active Substance: PANTOPRAZOLE
     Indication: Product used for unknown indication
     Dosage: 40 MG, QD
     Route: 065
  8. PREGABALIN [Concomitant]
     Active Substance: PREGABALIN
     Indication: Product used for unknown indication
     Dosage: 150 MG, 0.5 DAY
     Route: 065

REACTIONS (2)
  - Dysphagia [Recovered/Resolved]
  - General physical health deterioration [Unknown]

NARRATIVE: CASE EVENT DATE: 20220905
